FAERS Safety Report 4750138-4 (Version None)
Quarter: 2005Q3

REPORT INFORMATION
  Report Type: 
  Country: None (occurrence: None)
  Receive Date: 20050823
  Receipt Date: 20050816
  Transmission Date: 20060218
  Serious: Yes (Death)
  Sender: FDA-Public Use
  Company Number: NG-BOEHRINGER INGELHEIM PHARMACEUTICALS, INC.-2005-DE-03187GD

PATIENT

DRUGS (1)
  1. NEVIRAPINE [Suspect]
     Indication: HIV INFECTION

REACTIONS (5)
  - DEATH [None]
  - DEHYDRATION [None]
  - PULMONARY TUBERCULOSIS [None]
  - SEPSIS [None]
  - SUDDEN DEATH [None]
